FAERS Safety Report 25851972 (Version 1)
Quarter: 2025Q3

REPORT INFORMATION
  Report Type: Spontaneous
  Country: US (occurrence: None)
  Receive Date: 20250925
  Receipt Date: 20250925
  Transmission Date: 20251021
  Serious: Yes (Hospitalization)
  Sender: FDA-CTU
  Company Number: None

PATIENT
  Age: 57 Year
  Sex: Female

DRUGS (2)
  1. ICATIBANT [Suspect]
     Active Substance: ICATIBANT ACETATE
  2. TAKHZYRO [Suspect]
     Active Substance: LANADELUMAB-FLYO
     Dosage: FREQUENCY : EVERY OTHER WEEK;?

REACTIONS (6)
  - Hereditary angioedema [None]
  - Musculoskeletal chest pain [None]
  - Back pain [None]
  - Sepsis [None]
  - Limb amputation [None]
  - Surgical procedure repeated [None]
